FAERS Safety Report 7408658-X (Version None)
Quarter: 2011Q2

REPORT INFORMATION
  Report Type: 
  Country: None (occurrence: None)
  Receive Date: 20110412
  Receipt Date: 20110406
  Transmission Date: 20111010
  Serious: Yes (Hospitalization, Other)
  Sender: FDA-Public Use
  Company Number: FR-AMGEN-FRASP2011002202

PATIENT
  Sex: Male

DRUGS (4)
  1. PREDNISOLONE [Concomitant]
  2. NPLATE [Suspect]
     Indication: IDIOPATHIC THROMBOCYTOPENIC PURPURA
     Dosage: 1 A?G/KG, QWK
     Route: 058
     Dates: start: 20101201
  3. ZOPICLONE [Concomitant]
  4. CORTICOSTEROIDS [Concomitant]

REACTIONS (4)
  - MYALGIA [None]
  - THROMBOCYTOSIS [None]
  - THERAPEUTIC RESPONSE UNEXPECTED [None]
  - HAEMORRHAGE [None]
